FAERS Safety Report 6910856-6 (Version None)
Quarter: 2010Q3

REPORT INFORMATION
  Report Type: 
  Country: None (occurrence: None)
  Receive Date: 20100806
  Receipt Date: 20100728
  Transmission Date: 20110219
  Serious: Yes (Other)
  Sender: FDA-Public Use
  Company Number: AR-B.I. PHARMACEUTICALS,INC./RIDGEFIELD-2010-BP-08624BP

PATIENT
  Age: 38 Year
  Sex: Female

DRUGS (3)
  1. VIRAMUNE [Suspect]
     Indication: HIV INFECTION
     Route: 048
     Dates: start: 20051122, end: 20051214
  2. COMBIVIR [Concomitant]
     Indication: ANTIRETROVIRAL THERAPY
     Route: 048
     Dates: start: 20051122, end: 20051219
  3. DIPHENHYDRAMINE [Concomitant]

REACTIONS (1)
  - STILLBIRTH [None]
